FAERS Safety Report 17890478 (Version 2)
Quarter: 2020Q2

REPORT INFORMATION
  Report Type: Spontaneous
  Country: RO (occurrence: RO)
  Receive Date: 20200612
  Receipt Date: 20200616
  Transmission Date: 20200714
  Serious: Yes (Death)
  Sender: FDA-Public Use
  Company Number: RO-ROCHE-2594390

PATIENT
  Age: 71 Year

DRUGS (2)
  1. SOLU-MEDROL [Concomitant]
     Active Substance: METHYLPREDNISOLONE SODIUM SUCCINATE
     Route: 065
     Dates: start: 20200423, end: 20200425
  2. ROACTEMRA [Suspect]
     Active Substance: TOCILIZUMAB
     Indication: COVID-19
     Dosage: 2 ROACTEMRA ADMINISTRATIONS, WITH DOSE: 400 MG
     Route: 065
     Dates: start: 20200424, end: 20200425

REACTIONS (3)
  - Off label use [Fatal]
  - Intentional product use issue [Unknown]
  - Death [Fatal]
